FAERS Safety Report 17584393 (Version 2)
Quarter: 2020Q4

REPORT INFORMATION
  Report Type: Spontaneous
  Country: US (occurrence: US)
  Receive Date: 20200326
  Receipt Date: 20201116
  Transmission Date: 20210113
  Serious: No
  Sender: FDA-Public Use
  Company Number: US-PFIZER INC-2019138843

PATIENT
  Age: 92 Year
  Sex: Female
  Weight: 49.44 kg

DRUGS (4)
  1. LYRICA [Suspect]
     Active Substance: PREGABALIN
     Dosage: 25 MG, ONE A DAY
  2. LYRICA [Suspect]
     Active Substance: PREGABALIN
     Indication: NEUROPATHY PERIPHERAL
     Dosage: 50 MG, UNK
  3. LYRICA [Suspect]
     Active Substance: PREGABALIN
     Dosage: 25 MG, THREE A DAY
  4. LYRICA [Suspect]
     Active Substance: PREGABALIN
     Dosage: 25 MG, TWO A DAY
     Dates: start: 20201109

REACTIONS (3)
  - Intentional product use issue [Unknown]
  - Dry mouth [Unknown]
  - Product prescribing issue [Unknown]

NARRATIVE: CASE EVENT DATE: 20201109
